FAERS Safety Report 5375381-5 (Version None)
Quarter: 2007Q2

REPORT INFORMATION
  Report Type: 
  Country: None (occurrence: None)
  Receive Date: 20070622
  Receipt Date: 20070312
  Transmission Date: 20071010
  Serious: Yes (Other)
  Sender: FDA-Public Use
  Company Number: 35147

PATIENT
  Sex: Male

DRUGS (2)
  1. PAMIDRONATE DISODIUM [Suspect]
     Indication: PROSTATE CANCER STAGE I
  2. . [Concomitant]

REACTIONS (3)
  - BACK PAIN [None]
  - MYALGIA [None]
  - SYNCOPE [None]
